FAERS Safety Report 5812541-0 (Version None)
Quarter: 2008Q3

REPORT INFORMATION
  Report Type: 
  Country: None (occurrence: None)
  Receive Date: 20080711
  Receipt Date: 20080612
  Transmission Date: 20090109
  Serious: Yes (Hospitalization)
  Sender: FDA-Public Use
  Company Number: 000#5#2008-00123

PATIENT
  Sex: Male

DRUGS (13)
  1. ROTIGOTINE     (DOSE UNKNOWN), PATCH (SILICONE) (ROTIGOTINE) [Suspect]
     Indication: PARKINSON'S DISEASE
     Dosage: 14 MG/24H (14 MG/24H 1 IN 1 DAY(S)) TRANSDERMAL
     Route: 062
  2. LORAZEPAM [Concomitant]
  3. SELEGILINE (SELEGILINE) [Concomitant]
  4. GENTAMICIN [Concomitant]
  5. TOBRAMYCIN [Concomitant]
  6. TOBRAMYCIN, DEXAMETHASONE (DEXAMETHASONE, TOBRAMYCIN) [Concomitant]
  7. TETANUS ANTITOXIN (TETANUS ANTITOXIN) [Concomitant]
  8. ACETAMINOPHEN [Concomitant]
  9. PHENYLTOLOXAMIEN CITRATE, PHENYLPROPANOLAMINE HYDROCHLORIDE, PHENACETI [Concomitant]
  10. TRIHEXYPHENIDYL HYDROCHLORIDE [Concomitant]
  11. CLINDAMYCIN HYDROCHLORIDE           (MINOCYCLINE HYDROCHLORIDE) [Concomitant]
  12. AMITRIPTLINE HYDROCHLORIDE TAB [Concomitant]
  13. NAPROXEN [Concomitant]

REACTIONS (1)
  - MYOCARDIAL INFARCTION [None]
